FAERS Safety Report 8932105 (Version 2)
Quarter: 2012Q4

REPORT INFORMATION
  Report Type: 
  Country: JP (occurrence: JP)
  Receive Date: 20121128
  Receipt Date: 20121210
  Transmission Date: 20130627
  Serious: No
  Sender: FDA-Public Use
  Company Number: JP-JNJFOC-20121112051

PATIENT

DRUGS (3)
  1. ITRIZOLE [Suspect]
     Indication: PRODUCT USED FOR UNKNOWN INDICATION
     Dosage: pulse therapy
     Route: 048
  2. COROHERSER R [Concomitant]
     Route: 048
  3. NICORANDIL [Concomitant]
     Route: 048

REACTIONS (2)
  - Blood triglycerides increased [Unknown]
  - Gamma-glutamyltransferase increased [Unknown]
